FAERS Safety Report 7154143-2 (Version None)
Quarter: 2010Q4

REPORT INFORMATION
  Report Type: 
  Country: None (occurrence: None)
  Receive Date: 20101213
  Receipt Date: 20101213
  Transmission Date: 20110411
  Serious: Yes (Other)
  Sender: FDA-Public Use
  Company Number: US-ABBOTT-10P-163-0688651-00

PATIENT
  Sex: Female

DRUGS (1)
  1. LUPRON [Suspect]
     Indication: PRODUCT USED FOR UNKNOWN INDICATION

REACTIONS (7)
  - APHASIA [None]
  - CONFUSIONAL STATE [None]
  - HOT FLUSH [None]
  - HYSTERECTOMY [None]
  - MEMORY IMPAIRMENT [None]
  - OVARIAN FAILURE [None]
  - VULVOVAGINAL DRYNESS [None]
